FAERS Safety Report 8305285-7 (Version None)
Quarter: 2012Q2

REPORT INFORMATION
  Report Type: 
  Country: None (occurrence: None)
  Receive Date: 20120418
  Receipt Date: 20120404
  Transmission Date: 20120825
  Serious: Yes (Other)
  Sender: FDA-Public Use
  Company Number: GER/GER/12/0023872

PATIENT
  Age: 31 Year
  Sex: Female

DRUGS (1)
  1. CITALOPRAM HYDROBROMIDE [Suspect]
     Indication: PANIC DISORDER
     Dosage: 10 MG, 1 IN 1 D ; 20 MG, 1 IN 1 D

REACTIONS (14)
  - ANXIETY [None]
  - HYPOMANIA [None]
  - DEPRESSED MOOD [None]
  - FEELINGS OF WORTHLESSNESS [None]
  - INITIAL INSOMNIA [None]
  - VIOLENCE-RELATED SYMPTOM [None]
  - WEIGHT DECREASED [None]
  - IMPULSIVE BEHAVIOUR [None]
  - ASTHENIA [None]
  - SELF ESTEEM DECREASED [None]
  - MAJOR DEPRESSION [None]
  - DISTURBANCE IN ATTENTION [None]
  - TERMINAL INSOMNIA [None]
  - ANHEDONIA [None]
